FAERS Safety Report 13001856 (Version 1)
Quarter: 2016Q4

REPORT INFORMATION
  Report Type: Report from Study
  Country: US (occurrence: US)
  Receive Date: 20161206
  Receipt Date: 20161206
  Transmission Date: 20170207
  Serious: No
  Sender: FDA-Public Use
  Company Number: US-LANTHEUS-LMI-2016-00013

PATIENT
  Sex: Male

DRUGS (1)
  1. TECHNELITE [Suspect]
     Active Substance: TECHNETIUM TC-99M SODIUM PERTECHNETATE
     Indication: PRODUCT USED FOR UNKNOWN INDICATION
     Route: 065
     Dates: start: 20160113, end: 20160113

REACTIONS (1)
  - Occupational exposure to product [Unknown]

NARRATIVE: CASE EVENT DATE: 20160113
